FAERS Safety Report 14195558 (Version 10)
Quarter: 2018Q2

REPORT INFORMATION
  Report Type: Report from Study
  Country: DE (occurrence: DE)
  Receive Date: 20171116
  Receipt Date: 20180507
  Transmission Date: 20180711
  Serious: Yes (Hospitalization, Other)
  Sender: FDA-Public Use
  Company Number: DE-BRISTOL-MYERS SQUIBB COMPANY-BMS-2017-075656

PATIENT
  Age: 51 Year
  Sex: Female

DRUGS (2)
  1. NIVOLUMAB [Suspect]
     Active Substance: NIVOLUMAB
     Indication: NON-SMALL CELL LUNG CANCER
     Dosage: 3 MG/KG, Q2WK
     Route: 042
     Dates: start: 20170719
  2. LEVETIRACETAM. [Concomitant]
     Active Substance: LEVETIRACETAM
     Indication: PRODUCT USED FOR UNKNOWN INDICATION
     Dosage: 2000 MG, UNK
     Route: 065
     Dates: start: 20170815

REACTIONS (8)
  - Malignant neoplasm progression [Not Recovered/Not Resolved]
  - Pneumonitis [Recovered/Resolved]
  - Hypoxia [Recovered/Resolved]
  - Staphylococcus test positive [Recovered/Resolved]
  - Cough [Not Recovered/Not Resolved]
  - Seizure [Recovered/Resolved]
  - Polyneuropathy [Recovering/Resolving]
  - Secretion discharge [Recovered/Resolved]

NARRATIVE: CASE EVENT DATE: 20170815
